FAERS Safety Report 7765957-X (Version None)
Quarter: 2011Q3

REPORT INFORMATION
  Report Type: 
  Country: None (occurrence: None)
  Receive Date: 20110921
  Receipt Date: 20090713
  Transmission Date: 20111222
  Serious: Yes (Hospitalization, Other)
  Sender: FDA-Public Use
  Company Number: PHHY2009IE28922

PATIENT
  Sex: Female

DRUGS (15)
  1. CLOZAPINE [Suspect]
     Indication: SCHIZOPHRENIA
     Dosage: 425 MG, UNK
     Dates: start: 19931108
  2. PREGABALIN [Concomitant]
     Dosage: 75 MG, UNK
  3. FERROUS SULFATE TAB [Concomitant]
     Indication: ANAEMIA
     Dosage: UNK
     Route: 048
  4. ASASANTIN - SLOW RELEASE [Concomitant]
     Dosage: 1 DF, QD
  5. EFFEXOR XR [Concomitant]
     Indication: DEPRESSION
     Dosage: 225 MG, QD
     Route: 048
  6. STEMETIL ^AVENTIS PHARMA^ [Concomitant]
     Dosage: 5 MG, TID
     Route: 048
  7. VESITRIM [Concomitant]
     Dosage: 100 MG, UNK
     Route: 048
  8. RAMIPRIL [Concomitant]
     Indication: HYPERTENSION
     Dosage: 5 MG, QD
     Route: 048
  9. VENLAFAXINE HYDROCHLORIDE [Concomitant]
     Indication: DEPRESSION
     Dosage: 150 MG, UNK
     Route: 048
  10. ACETAMINOPHEN [Concomitant]
     Indication: ARTERITIS
     Dosage: 500 MG, UNK
     Route: 048
  11. BIODEL [Concomitant]
     Indication: ARTHRITIS
     Dosage: 50 MG, BID
     Route: 048
  12. LIPITOR [Concomitant]
     Indication: HYPERLIPIDAEMIA
     Dosage: 40 MG, UNK
     Route: 048
  13. DONA [Concomitant]
     Dosage: 1 DF, UNK
     Route: 048
  14. DIAMICRON [Concomitant]
     Dosage: 120 MG, BID
     Route: 048
  15. MIRTAZAPINE [Concomitant]
     Indication: DEPRESSION
     Dosage: 15 MG, QHS
     Route: 048

REACTIONS (9)
  - HYPERCHOLESTEROLAEMIA [None]
  - URINARY TRACT INFECTION [None]
  - HAEMOGLOBIN DECREASED [None]
  - CIRCULATORY COLLAPSE [None]
  - CONFUSIONAL STATE [None]
  - BLOOD GLUCOSE INCREASED [None]
  - DIABETES MELLITUS [None]
  - HYPERTENSION [None]
  - PYREXIA [None]
